FAERS Safety Report 9856379 (Version 2)
Quarter: 2014Q1

REPORT INFORMATION
  Report Type: Spontaneous
  Country: US (occurrence: US)
  Receive Date: 20140130
  Receipt Date: 20140314
  Transmission Date: 20141002
  Serious: No
  Sender: FDA-Public Use
  Company Number: US-PFIZER INC-2014027503

PATIENT
  Age: 37 Year
  Sex: Female
  Weight: 56.69 kg

DRUGS (3)
  1. LYRICA [Suspect]
     Indication: NERVE INJURY
     Dosage: UNK
  2. LYRICA [Suspect]
     Dosage: 300 MG, 2X/DAY
  3. LYRICA [Suspect]
     Dosage: 300 MG, 1X/DAY

REACTIONS (2)
  - Pain [Not Recovered/Not Resolved]
  - Insomnia [Unknown]
